FAERS Safety Report 6266776-6 (Version None)
Quarter: 2009Q3

REPORT INFORMATION
  Report Type: 
  Country: None (occurrence: None)
  Receive Date: 20090709
  Receipt Date: 20090709
  Transmission Date: 20100115
  Serious: Yes (Disabling, Other)
  Sender: FDA-Public Use
  Company Number: None

PATIENT
  Age: 40 Year
  Sex: Male

DRUGS (2)
  1. STRATTERA [Suspect]
     Indication: ATTENTION DEFICIT/HYPERACTIVITY DISORDER
     Dosage: DAILY PAST 10+ YEARS
  2. FOCALIN [Suspect]
     Indication: ASPERGER'S DISORDER

REACTIONS (20)
  - ANGER [None]
  - CONDITION AGGRAVATED [None]
  - CONFUSIONAL STATE [None]
  - DELUSION [None]
  - DYSURIA [None]
  - FEELING ABNORMAL [None]
  - HEADACHE [None]
  - NEGATIVE THOUGHTS [None]
  - NERVOUS SYSTEM DISORDER [None]
  - OBSESSIVE THOUGHTS [None]
  - OVERDOSE [None]
  - PARAESTHESIA [None]
  - PARANOIA [None]
  - SCHIZOPHRENIA [None]
  - SEXUAL DYSFUNCTION [None]
  - SEXUAL INHIBITION [None]
  - SKIN BURNING SENSATION [None]
  - TESTICULAR DISORDER [None]
  - TESTICULAR SWELLING [None]
  - THINKING ABNORMAL [None]
